FAERS Safety Report 8138976-1 (Version None)
Quarter: 2012Q1

REPORT INFORMATION
  Report Type: 
  Country: None (occurrence: None)
  Receive Date: 20120215
  Receipt Date: 20120203
  Transmission Date: 20120608
  Serious: Yes (Other)
  Sender: FDA-Public Use
  Company Number: FR-JNJFOC-20120204991

PATIENT
  Sex: Male
  Weight: 3.5 kg

DRUGS (11)
  1. IRON [Concomitant]
     Dates: start: 20100611, end: 20100611
  2. REMICADE [Suspect]
     Route: 064
     Dates: start: 20071221
  3. IRON [Concomitant]
     Indication: ANAEMIA
     Dates: start: 20100723, end: 20100723
  4. IRON [Concomitant]
     Dates: start: 20071026, end: 20080325
  5. REMICADE [Suspect]
     Route: 064
     Dates: start: 20100723
  6. REMICADE [Suspect]
     Route: 064
     Dates: start: 20080325
  7. IRON [Concomitant]
     Dates: start: 20080912, end: 20081015
  8. REMICADE [Suspect]
     Indication: FOETAL EXPOSURE DURING PREGNANCY
     Route: 064
     Dates: start: 20100326
  9. REMICADE [Suspect]
     Route: 064
     Dates: start: 20100204
  10. REMICADE [Suspect]
     Route: 064
     Dates: start: 20100514
  11. REMICADE [Suspect]
     Route: 064
     Dates: start: 20080208

REACTIONS (1)
  - PREMATURE BABY [None]
